FAERS Safety Report 7018816-4 (Version None)
Quarter: 2010Q3

REPORT INFORMATION
  Report Type: 
  Country: None (occurrence: None)
  Receive Date: 20100928
  Receipt Date: 20100916
  Transmission Date: 20110219
  Serious: Yes (Hospitalization, Other)
  Sender: FDA-Public Use
  Company Number: US-PFIZER INC-2010080500

PATIENT
  Sex: Female
  Weight: 57 kg

DRUGS (2)
  1. REVATIO [Suspect]
     Indication: PULMONARY HYPERTENSION
     Dosage: 20 MG, 3X/DAY
     Route: 048
     Dates: start: 20100301, end: 20100501
  2. PROGRAF [Concomitant]
     Indication: RENAL TRANSPLANT
     Dosage: UNK

REACTIONS (2)
  - ARRHYTHMIA [None]
  - HYPERTENSION [None]
